FAERS Safety Report 11316980 (Version 3)
Quarter: 2015Q3

REPORT INFORMATION
  Report Type: Spontaneous
  Country: US (occurrence: US)
  Receive Date: 20150728
  Receipt Date: 20150929
  Transmission Date: 20151125
  Serious: Yes (Death, Hospitalization, Other)
  Sender: FDA-Public Use
  Company Number: US-PFIZER INC-2015243750

PATIENT
  Age: 75 Year
  Sex: Male
  Weight: 87 kg

DRUGS (8)
  1. PREDNISONE. [Concomitant]
     Active Substance: PREDNISONE
     Indication: LEUKAEMIA
     Dosage: 10 MG, ALTERNATE DAY (EVERY OTHER DAY)
  2. XANAX [Concomitant]
     Active Substance: ALPRAZOLAM
     Indication: INSOMNIA
     Dosage: 2.5 MG TABLET AT NIGHT
     Route: 048
  3. HYDROXYUREA. [Concomitant]
     Active Substance: HYDROXYUREA
     Dosage: 500 MG, 2X/DAY (DOSE WOULD CHANGE DEPENDING ON HIS WHITE COUNT)
     Route: 048
  4. RANEXA [Concomitant]
     Active Substance: RANOLAZINE
     Dosage: 1000 MG, 2X/DAY
     Route: 048
  5. ALLOPURINOL. [Concomitant]
     Active Substance: ALLOPURINOL
     Indication: LEUKAEMIA
     Dosage: 100 MG, 1X/DAY
     Route: 048
  6. SUTENT [Suspect]
     Active Substance: SUNITINIB MALATE
     Indication: ACUTE MYELOID LEUKAEMIA
     Dosage: 25 MG, CYCLIC, 1X/DAY (21 DAYS)
     Dates: start: 20150513, end: 20150604
  7. PROTONIX [Concomitant]
     Active Substance: PANTOPRAZOLE SODIUM
     Dosage: 40 MG, 1X/DAY
     Route: 048
  8. ROPINIROLE. [Concomitant]
     Active Substance: ROPINIROLE
     Indication: RESTLESS LEGS SYNDROME
     Dosage: UNK, 2X/DAY (NIGHT 2MG TABLETS BY MOUTH AND 1.5 MG TABLET IN DAY TIME)
     Route: 048

REACTIONS (6)
  - Acute myeloid leukaemia [Fatal]
  - Disease progression [Fatal]
  - Anaemia [Unknown]
  - Therapeutic response unexpected [Unknown]
  - Product use issue [Unknown]
  - Platelet count decreased [Unknown]

NARRATIVE: CASE EVENT DATE: 2015
